FAERS Safety Report 14053662 (Version 2)
Quarter: 2017Q4

REPORT INFORMATION
  Report Type: Report from Study
  Country: None (occurrence: CO)
  Receive Date: 20171006
  Receipt Date: 20171117
  Transmission Date: 20180321
  Serious: Yes (Other)
  Sender: FDA-Public Use
  Company Number: CO-ABBVIE-17K-036-2122224-00

PATIENT
  Age: 52 Year
  Sex: Male
  Weight: 66 kg

DRUGS (2)
  1. METHOTREXATE. [Concomitant]
     Active Substance: METHOTREXATE
     Indication: PRODUCT USED FOR UNKNOWN INDICATION
  2. HUMIRA [Suspect]
     Active Substance: ADALIMUMAB
     Indication: RHEUMATOID ARTHRITIS
     Route: 058
     Dates: start: 20100719, end: 20170321

REACTIONS (2)
  - Inguinal hernia [Recovering/Resolving]
  - Incision site pain [Recovering/Resolving]

NARRATIVE: CASE EVENT DATE: 20170921
